FAERS Safety Report 6088888-2 (Version None)
Quarter: 2009Q1

REPORT INFORMATION
  Report Type: 
  Country: None (occurrence: None)
  Receive Date: 20090224
  Receipt Date: 20090219
  Transmission Date: 20090719
  Serious: Yes (Hospitalization)
  Sender: FDA-Public Use
  Company Number: ES-ASTRAZENECA-2009AC00598

PATIENT
  Age: 66 Year
  Sex: Male

DRUGS (2)
  1. PROPOFOL [Suspect]
     Indication: SEDATION
  2. PROPOFOL [Suspect]
     Indication: ENDOSCOPIC RETROGRADE CHOLANGIOPANCREATOGRAPHY

REACTIONS (1)
  - HEPATITIS TOXIC [None]
